FAERS Safety Report 11568757 (Version 2)
Quarter: 2015Q4

REPORT INFORMATION
  Report Type: Spontaneous
  Country: US (occurrence: US)
  Receive Date: 20150916
  Receipt Date: 20151027
  Transmission Date: 20160304
  Serious: No
  Sender: FDA-Public Use
  Company Number: US-ELI_LILLY_AND_COMPANY-US200908005260

PATIENT
  Age: 83 Year
  Sex: Female

DRUGS (3)
  1. FORTEO [Suspect]
     Active Substance: TERIPARATIDE
  2. FORTEO [Suspect]
     Active Substance: TERIPARATIDE
     Dosage: UNK, UNKNOWN
     Dates: start: 2009
  3. FORTEO [Suspect]
     Active Substance: TERIPARATIDE

REACTIONS (1)
  - Medication error [Recovered/Resolved]

NARRATIVE: CASE EVENT DATE: 20090821
